FAERS Safety Report 21740977 (Version 2)
Quarter: 2024Q3

REPORT INFORMATION
  Report Type: Other
  Country: FR (occurrence: FR)
  Receive Date: 20221216
  Receipt Date: 20240806
  Transmission Date: 20241016
  Serious: Yes (Death, Other)
  Sender: RECORDATI
  Company Number: FR-RECORDATI-2022006629

PATIENT

DRUGS (4)
  1. OSILODROSTAT [Suspect]
     Active Substance: OSILODROSTAT
     Indication: Cushing^s syndrome
     Dosage: STARTED AT 10 MILLIGRAM/DAY UPTO MAXIMUM 40 MG/D)
  2. OSILODROSTAT [Suspect]
     Active Substance: OSILODROSTAT
     Indication: Ectopic ACTH syndrome
  3. KETOCONAZOLE [Concomitant]
     Active Substance: KETOCONAZOLE
     Indication: Cushing^s syndrome
  4. KETOCONAZOLE [Concomitant]
     Active Substance: KETOCONAZOLE
     Indication: Ectopic ACTH syndrome

REACTIONS (2)
  - Adrenal insufficiency [Fatal]
  - Off label use [Recovered/Resolved]
